FAERS Safety Report 7293334-7 (Version None)
Quarter: 2011Q1

REPORT INFORMATION
  Report Type: 
  Country: None (occurrence: None)
  Receive Date: 20110210
  Receipt Date: 20110210
  Transmission Date: 20110831
  Serious: Yes (Life-Threatening)
  Sender: FDA-Public Use
  Company Number: None

PATIENT
  Age: 40 Year
  Sex: Female
  Weight: 81.6475 kg

DRUGS (2)
  1. EFFEXOR [Suspect]
     Indication: ANXIETY
     Dosage: ONCE DAILY PO
     Route: 048
     Dates: start: 20041015, end: 20041101
  2. EFFEXOR [Suspect]
     Indication: DEPRESSION
     Dosage: ONCE DAILY PO
     Route: 048
     Dates: start: 20041015, end: 20041101

REACTIONS (4)
  - ABNORMAL DREAMS [None]
  - MALAISE [None]
  - CEREBROVASCULAR ACCIDENT [None]
  - HYPERTENSION [None]
